FAERS Safety Report 8118498-4 (Version None)
Quarter: 2012Q1

REPORT INFORMATION
  Report Type: 
  Country: None (occurrence: None)
  Receive Date: 20120207
  Receipt Date: 20120203
  Transmission Date: 20120608
  Serious: Yes (Other)
  Sender: FDA-Public Use
  Company Number: JP-PFIZER INC-2011304689

PATIENT
  Age: 71 Year
  Sex: Male

DRUGS (5)
  1. LANTUS [Concomitant]
     Indication: DIABETES MELLITUS
     Dosage: 10 UNITS/DAY
     Route: 058
  2. BETAMETHASONE [Concomitant]
     Indication: PRURITUS
     Dosage: UNK
     Route: 061
     Dates: start: 20111205
  3. LYRICA [Suspect]
     Indication: DIABETIC NEUROPATHY
     Dosage: 75 MG, 1X/DAY
     Route: 048
     Dates: start: 20111210, end: 20111213
  4. AMARYL [Concomitant]
     Indication: DIABETES MELLITUS
     Dosage: 3 MG/DAY
     Route: 048
  5. LENDORMIN [Concomitant]
     Indication: INSOMNIA
     Dosage: 0.25 MG/DAY
     Route: 048

REACTIONS (2)
  - EYE HAEMORRHAGE [None]
  - OCULAR HYPERAEMIA [None]
